FAERS Safety Report 5683017-9 (Version None)
Quarter: 2008Q1

REPORT INFORMATION
  Report Type: 
  Country: None (occurrence: None)
  Receive Date: 20080327
  Receipt Date: 20080321
  Transmission Date: 20080703
  Serious: Yes (Hospitalization)
  Sender: FDA-Public Use
  Company Number: KR-WYE-H01515707

PATIENT
  Sex: Female
  Weight: 54.5 kg

DRUGS (22)
  1. SIROLIMUS [Suspect]
     Indication: PROPHYLAXIS AGAINST TRANSPLANT REJECTION
     Route: 048
     Dates: start: 20071101, end: 20071120
  2. BUSCOPAN [Concomitant]
     Indication: PAIN
     Route: 048
     Dates: start: 20071102, end: 20071108
  3. FELODIPINE [Concomitant]
     Indication: HYPERTENSION
     Route: 048
     Dates: start: 20071102, end: 20071229
  4. SANDIMMUNE [Concomitant]
     Indication: PROPHYLAXIS AGAINST TRANSPLANT REJECTION
     Route: 048
     Dates: start: 20071103, end: 20071121
  5. PREDNISOLONE [Concomitant]
     Indication: PROPHYLAXIS AGAINST TRANSPLANT REJECTION
     Route: 048
     Dates: start: 20071105, end: 20071128
  6. PREDNISOLONE [Concomitant]
     Route: 048
     Dates: start: 20071129, end: 20080118
  7. PREDNISOLONE [Concomitant]
     Route: 048
     Dates: start: 20080119
  8. CARVEDILOL [Concomitant]
     Indication: HYPERTENSION
     Route: 048
     Dates: start: 20071114, end: 20071122
  9. CEFOTIAM HYDROCHLORIDE [Concomitant]
     Indication: INFECTION PROPHYLAXIS
     Route: 042
     Dates: start: 20071101, end: 20071206
  10. PANCRELIPASE [Concomitant]
     Indication: PROPHYLAXIS
     Route: 048
     Dates: start: 20071102
  11. PANTOPRAZOLE SODIUM [Concomitant]
     Indication: PROPHYLAXIS
     Route: 042
     Dates: start: 20071112, end: 20071121
  12. ULCERMIN [Concomitant]
     Indication: PROPHYLAXIS
     Route: 048
     Dates: start: 20071112
  13. ULCERMIN [Concomitant]
     Dosage: 15 ML SUSPENSION PRN
     Route: 048
     Dates: start: 20071214, end: 20080126
  14. LASIX [Concomitant]
     Indication: POLYURIA
     Route: 042
     Dates: start: 20071103, end: 20071104
  15. LASIX [Concomitant]
     Route: 048
     Dates: start: 20071111, end: 20071123
  16. LASIX [Concomitant]
     Route: 048
     Dates: start: 20071128, end: 20071206
  17. LASIX [Concomitant]
     Route: 048
     Dates: start: 20071207, end: 20071208
  18. LASIX [Concomitant]
     Route: 048
     Dates: start: 20071208, end: 20071208
  19. LASIX [Concomitant]
     Route: 048
     Dates: start: 20080116, end: 20080120
  20. SULFAMETHOXAZOLE AND TRIMETHOPRIM [Concomitant]
     Indication: INFECTION PROPHYLAXIS
     Dosage: 1.5 BID
     Route: 048
     Dates: start: 20071102, end: 20071107
  21. SULFAMETHOXAZOLE AND TRIMETHOPRIM [Concomitant]
     Route: 048
     Dates: start: 20071108, end: 20071127
  22. ADALAT [Concomitant]
     Indication: HYPERTENSION
     Route: 048
     Dates: start: 20071102, end: 20071103

REACTIONS (10)
  - CULTURE STOOL POSITIVE [None]
  - ENTEROCOCCAL INFECTION [None]
  - HAEMODIALYSIS [None]
  - KIDNEY TRANSPLANT REJECTION [None]
  - LYMPHORRHOEA [None]
  - RENAL TUBULAR NECROSIS [None]
  - T-LYMPHOCYTE COUNT DECREASED [None]
  - URINARY TRACT INFECTION ENTEROCOCCAL [None]
  - WOUND DEHISCENCE [None]
  - WOUND HAEMORRHAGE [None]
